FAERS Safety Report 8156686-1 (Version None)
Quarter: 2012Q1

REPORT INFORMATION
  Report Type: 
  Country: None (occurrence: None)
  Receive Date: 20120216
  Receipt Date: 20120210
  Transmission Date: 20120608
  Serious: Yes (Hospitalization)
  Sender: FDA-Public Use
  Company Number: TPA2012A00648

PATIENT
  Age: 72 Year
  Sex: Male
  Weight: 74.8435 kg

DRUGS (5)
  1. METOLAZONE [Concomitant]
  2. GLIPIZIDE [Concomitant]
  3. LEVOTHYROXINE SODIUM [Concomitant]
  4. AMLODIPINE [Concomitant]
  5. ACTOS [Suspect]
     Indication: TYPE 2 DIABETES MELLITUS
     Dosage: 45 MG, 1 IN 1 D, PER ORAL
     Route: 048

REACTIONS (2)
  - DIALYSIS [None]
  - RENAL IMPAIRMENT [None]
